FAERS Safety Report 5717159-6 (Version None)
Quarter: 2008Q2

REPORT INFORMATION
  Report Type: 
  Country: None (occurrence: None)
  Receive Date: 20080423
  Receipt Date: 20080404
  Transmission Date: 20081010
  Serious: Yes (Hospitalization)
  Sender: FDA-Public Use
  Company Number: 04042008-CG-A

PATIENT
  Age: 81 Year
  Sex: Male
  Weight: 54.4316 kg

DRUGS (13)
  1. HURRICAINE TOPICAL ANESTHETIC SPRAY - 20% BENZOCAINE ORAL ANESTHETIC B [Suspect]
     Indication: ECHOCARDIOGRAM
     Dosage: ORALLY - DOSE NOT RECORDED
     Route: 048
     Dates: start: 20080213
  2. FENTANYL-100 [Concomitant]
  3. LIDOCAINE HCL VISCOUS [Concomitant]
  4. ATORVASTATIN CALCIUM [Concomitant]
  5. LOVENOX [Concomitant]
  6. NEXIUM [Concomitant]
  7. LISINOPRIL [Concomitant]
  8. METOPROLOL TARTRATE [Concomitant]
  9. VERSED [Concomitant]
  10. FLUCONAZOLE [Concomitant]
  11. DOCUSATE SOD [Concomitant]
  12. SODIUM PHOSPHATES [Concomitant]
  13. MILK OF MAGNESIA LIQUID [Concomitant]

REACTIONS (1)
  - METHAEMOGLOBINAEMIA [None]
